FAERS Safety Report 7453835-5 (Version None)
Quarter: 2011Q2

REPORT INFORMATION
  Report Type: 
  Country: None (occurrence: None)
  Receive Date: 20110502
  Receipt Date: 20110407
  Transmission Date: 20111010
  Serious: Yes (Other)
  Sender: FDA-Public Use
  Company Number: US-BAYER-200934803NA

PATIENT
  Sex: Male

DRUGS (4)
  1. PROTAMINE SULFATE [Concomitant]
  2. UNASYN [AMPICILLIN SODIUM,SULBACTAM SODIUM] [Concomitant]
     Dosage: UNK
  3. TRASYLOL [Suspect]
     Indication: TRICUSPID VALVE REPLACEMENT
     Dosage: INITAL TEST DOSE, THEN 200 ML LOADING DOSE FOLLOWED BY 50ML/HR INFUSION
     Dates: start: 19980206, end: 19980206
  4. HEPARIN [Concomitant]

REACTIONS (11)
  - PAIN [None]
  - MULTI-ORGAN FAILURE [None]
  - RENAL FAILURE [None]
  - DEPRESSION [None]
  - EMOTIONAL DISTRESS [None]
  - ANHEDONIA [None]
  - RENAL INJURY [None]
  - INJURY [None]
  - ANXIETY [None]
  - NERVOUSNESS [None]
  - FEAR [None]
